APPROVED DRUG PRODUCT: AZITHROMYCIN
Active Ingredient: AZITHROMYCIN
Strength: EQ 500MG BASE/VIAL
Dosage Form/Route: INJECTABLE;INJECTION
Application: A204732 | Product #001
Applicant: RISING PHARMA HOLDING INC
Approved: Jan 26, 2017 | RLD: No | RS: No | Type: DISCN